FAERS Safety Report 14190612 (Version 1)
Quarter: 2017Q4

REPORT INFORMATION
  Report Type: Spontaneous
  Country: US (occurrence: US)
  Receive Date: 20171115
  Receipt Date: 20171115
  Transmission Date: 20180321
  Serious: Yes (Hospitalization, Other)
  Sender: FDA-Public Use
  Company Number: US-ALEXION-A201712401

PATIENT
  Age: 6 Year
  Sex: Female
  Weight: 23 kg

DRUGS (2)
  1. ROCEPHIN [Concomitant]
     Active Substance: CEFTRIAXONE SODIUM
     Indication: PROPHYLAXIS
     Dosage: 1 G, QD
     Route: 065
  2. SOLIRIS [Suspect]
     Active Substance: ECULIZUMAB
     Indication: ATYPICAL HAEMOLYTIC URAEMIC SYNDROME
     Dosage: 600 MG, QW
     Route: 042
     Dates: start: 20171030, end: 20171030

REACTIONS (7)
  - Platelet count decreased [Unknown]
  - Lipase increased [Unknown]
  - Haemoglobin decreased [Unknown]
  - Hypersensitivity [Recovered/Resolved]
  - Blood creatinine increased [Not Recovered/Not Resolved]
  - Underdose [Recovered/Resolved]
  - Blood lactate dehydrogenase increased [Unknown]

NARRATIVE: CASE EVENT DATE: 20171030
